FAERS Safety Report 22366556 (Version 1)
Quarter: 2023Q2

REPORT INFORMATION
  Report Type: Spontaneous
  Country: US (occurrence: None)
  Receive Date: 20230525
  Receipt Date: 20230525
  Transmission Date: 20230721
  Serious: Yes (Other)
  Sender: FDA-Public Use
  Company Number: 2023A116612

PATIENT
  Age: 70 Year
  Sex: Female

DRUGS (14)
  1. FARXIGA [Suspect]
     Active Substance: DAPAGLIFLOZIN PROPANEDIOL
     Indication: Renal disorder
     Route: 048
  2. FARXIGA [Suspect]
     Active Substance: DAPAGLIFLOZIN PROPANEDIOL
     Indication: Urinary tract infection
     Route: 048
  3. ASPIRIN [Concomitant]
     Active Substance: ASPIRIN
  4. RANOLAZINE [Concomitant]
     Active Substance: RANOLAZINE
  5. CRESTOR [Concomitant]
     Active Substance: ROSUVASTATIN CALCIUM
  6. CO Q [Concomitant]
     Dosage: 10.0MG UNKNOWN
  7. A VITAMIN FOR LEG CRAMPS [Concomitant]
     Indication: Muscle spasms
  8. LEXAPRO [Concomitant]
     Active Substance: ESCITALOPRAM OXALATE
     Dosage: 10.0MG UNKNOWN
  9. A GOOD WOMAN^S VITAMIN [Concomitant]
  10. ISOSORBIDE DINITRATE [Concomitant]
     Active Substance: ISOSORBIDE DINITRATE
  11. FAMOTIDINE [Concomitant]
     Active Substance: FAMOTIDINE
     Indication: Gastrooesophageal reflux disease
  12. CEFDINIR [Concomitant]
     Active Substance: CEFDINIR
     Indication: Urinary tract infection
     Dosage: TWICE A DAY
  13. HYDRALAZINE [Concomitant]
     Active Substance: HYDRALAZINE HYDROCHLORIDE
  14. LASIX [Concomitant]
     Active Substance: FUROSEMIDE

REACTIONS (8)
  - Chronic kidney disease [Unknown]
  - Culture urine positive [Unknown]
  - Drug hypersensitivity [Unknown]
  - Urticaria [Unknown]
  - Contusion [Unknown]
  - Gastrooesophageal reflux disease [Unknown]
  - Urinary tract infection [Unknown]
  - Product use issue [Not Recovered/Not Resolved]

NARRATIVE: CASE EVENT DATE: 20221201
